FAERS Safety Report 8847837 (Version 1)
Quarter: 2012Q4

REPORT INFORMATION
  Report Type: 
  Country: RU (occurrence: RU)
  Receive Date: 20121018
  Receipt Date: 20121018
  Transmission Date: 20130627
  Serious: Yes (Other)
  Sender: FDA-Public Use
  Company Number: RU-JNJFOC-20121006970

PATIENT
  Age: 26 Year
  Sex: Female

DRUGS (2)
  1. EVRA [Suspect]
     Indication: PROPHYLAXIS
     Route: 062
     Dates: start: 201206
  2. EVRA [Suspect]
     Indication: HORMONE THERAPY
     Route: 062
     Dates: start: 201206

REACTIONS (3)
  - Ovarian cyst [Not Recovered/Not Resolved]
  - Inappropriate schedule of drug administration [Unknown]
  - Off label use [Unknown]
